FAERS Safety Report 21597414 (Version 9)
Quarter: 2023Q1

REPORT INFORMATION
  Report Type: Spontaneous
  Country: US (occurrence: US)
  Receive Date: 20221115
  Receipt Date: 20230202
  Transmission Date: 20230417
  Serious: No
  Sender: FDA-Public Use
  Company Number: US-PFIZER INC-202201286645

PATIENT
  Age: 73 Year
  Sex: Female
  Weight: 90.26 kg

DRUGS (1)
  1. PREMARIN [Suspect]
     Active Substance: ESTROGENS, CONJUGATED
     Indication: Vaginal prolapse
     Dosage: 1 MARK ON THE APPLICATOR, EVERY NIGHT
     Dates: start: 20221105

REACTIONS (6)
  - Musculoskeletal disorder [Unknown]
  - Device difficult to use [Unknown]
  - Drug dose omission by device [Unknown]
  - Off label use [Unknown]
  - Product prescribing error [Unknown]
  - Device malfunction [Unknown]

NARRATIVE: CASE EVENT DATE: 20221101
